FAERS Safety Report 24080570 (Version 3)
Quarter: 2025Q4

REPORT INFORMATION
  Report Type: Spontaneous
  Country: VN (occurrence: VN)
  Receive Date: 20240711
  Receipt Date: 20251118
  Transmission Date: 20260118
  Serious: Yes (Other)
  Sender: SANDOZ
  Company Number: VN-002147023-NVSC2024VN139885

PATIENT
  Age: 64 Year
  Sex: Female

DRUGS (5)
  1. FULVESTRANT [Suspect]
     Active Substance: FULVESTRANT
     Indication: Breast cancer
     Dosage: UNK
     Route: 065
     Dates: start: 202212
  2. PACLITAXEL [Suspect]
     Active Substance: PACLITAXEL
     Indication: Breast cancer
     Dosage: UNK (3 CYCLES)
     Route: 065
     Dates: start: 202303
  3. CARBOPLATIN [Concomitant]
     Active Substance: CARBOPLATIN
     Indication: Breast cancer
     Dosage: UNK (6 CYCLES)
     Route: 065
     Dates: start: 202303
  4. GEMCITABINE [Concomitant]
     Active Substance: GEMCITABINE
     Indication: Breast cancer
     Dosage: UNK (3 CYCLES)
     Route: 065
     Dates: start: 202303
  5. PALBOCICLIB [Concomitant]
     Active Substance: PALBOCICLIB
     Indication: Breast cancer
     Dosage: UNK
     Route: 065
     Dates: start: 202212

REACTIONS (10)
  - Organ failure [Unknown]
  - Hepatic enzyme increased [Recovered/Resolved]
  - Breast cancer [Unknown]
  - Malignant neoplasm progression [Unknown]
  - Metastases to liver [Unknown]
  - Condition aggravated [Unknown]
  - Effusion [Recovered/Resolved]
  - General physical health deterioration [Unknown]
  - Metastases to lung [Unknown]
  - Metastases to bone [Unknown]

NARRATIVE: CASE EVENT DATE: 20230301
